FAERS Safety Report 6272701-4 (Version None)
Quarter: 2009Q3

REPORT INFORMATION
  Report Type: 
  Country: None (occurrence: None)
  Receive Date: 20090716
  Receipt Date: 20090716
  Transmission Date: 20100115
  Serious: No
  Sender: FDA-Public Use
  Company Number: None

PATIENT
  Age: 85 Year
  Sex: Male
  Weight: 83.9154 kg

DRUGS (1)
  1. AVODART [Suspect]
     Indication: PROSTATE CANCER
     Dosage: 1 CAPSULE AM DAILY
     Dates: start: 20090330, end: 20090629

REACTIONS (6)
  - ABDOMINAL PAIN UPPER [None]
  - CONSTIPATION [None]
  - HAEMORRHAGE [None]
  - MALAISE [None]
  - PROSTATIC DISORDER [None]
  - PROSTATIC PAIN [None]
